FAERS Safety Report 23384324 (Version 2)
Quarter: 2024Q1

REPORT INFORMATION
  Report Type: Spontaneous
  Country: US (occurrence: US)
  Receive Date: 20240109
  Receipt Date: 20240208
  Transmission Date: 20240410
  Serious: No
  Sender: FDA-Public Use
  Company Number: US-BRISTOL-MYERS SQUIBB COMPANY-2024-004356

PATIENT
  Age: 70 Year
  Sex: Male

DRUGS (1)
  1. REVLIMID [Suspect]
     Active Substance: LENALIDOMIDE
     Indication: Plasma cell myeloma
     Route: 048
     Dates: start: 202201

REACTIONS (6)
  - Gastrointestinal disorder [Unknown]
  - Hiccups [Unknown]
  - Sleep disorder [Unknown]
  - Memory impairment [Unknown]
  - Weight decreased [Unknown]
  - Anger [Unknown]
